FAERS Safety Report 14599140 (Version 1)
Quarter: 2018Q1

REPORT INFORMATION
  Report Type: Spontaneous
  Country: US (occurrence: US)
  Receive Date: 20180303
  Receipt Date: 20180303
  Transmission Date: 20180509
  Serious: Yes (Other)
  Sender: FDA-Public Use
  Company Number: None

PATIENT
  Age: 57 Year
  Sex: Female
  Weight: 69.75 kg

DRUGS (13)
  1. TRAZODONE [Concomitant]
     Active Substance: TRAZODONE HYDROCHLORIDE
  2. LYRICA [Suspect]
     Active Substance: PREGABALIN
     Indication: SLEEP DISORDER
     Dosage: ?          QUANTITY:1 CAPSULE(S);?
     Route: 048
  3. MELATONIN [Concomitant]
     Active Substance: MELATONIN
  4. CALCIUM CITRATE [Concomitant]
     Active Substance: CALCIUM CITRATE
  5. PROTELOIC ENZYMES [Concomitant]
  6. LYRICA [Suspect]
     Active Substance: PREGABALIN
     Indication: PAIN
     Dosage: ?          QUANTITY:1 CAPSULE(S);?
     Route: 048
  7. NALTREXONE [Concomitant]
     Active Substance: NALTREXONE
  8. BU-PAP [Concomitant]
  9. 5HTP L-TRYPTOPHAN [Concomitant]
  10. ROBAXIN [Concomitant]
     Active Substance: METHOCARBAMOL
  11. SELENIUM [Concomitant]
     Active Substance: SELENIUM
  12. MAGNESIUM [Concomitant]
     Active Substance: MAGNESIUM
  13. VISTARIL [Concomitant]
     Active Substance: HYDROXYZINE PAMOATE

REACTIONS (8)
  - Impaired work ability [None]
  - Feeling abnormal [None]
  - Therapy change [None]
  - Drug tolerance [None]
  - Off label use [None]
  - Irritability [None]
  - Quality of life decreased [None]
  - Insomnia [None]

NARRATIVE: CASE EVENT DATE: 20180215
